FAERS Safety Report 8400753-1 (Version None)
Quarter: 2012Q2

REPORT INFORMATION
  Report Type: 
  Country: None (occurrence: None)
  Receive Date: 20120531
  Receipt Date: 20120523
  Transmission Date: 20120825
  Serious: Yes (Hospitalization)
  Sender: FDA-Public Use
  Company Number: US-MERCK-1105USA01697

PATIENT
  Age: 83 Year
  Sex: Female

DRUGS (2)
  1. FOSAMAX [Suspect]
     Route: 065
  2. FOSAMAX [Suspect]
     Indication: BONE DENSITY DECREASED
     Route: 048
     Dates: start: 20020101, end: 20101001

REACTIONS (7)
  - FEMUR FRACTURE [None]
  - ASTHMA [None]
  - MICTURITION URGENCY [None]
  - ADVERSE DRUG REACTION [None]
  - CHRONIC OBSTRUCTIVE PULMONARY DISEASE [None]
  - FALL [None]
  - INCORRECT DOSE ADMINISTERED [None]
